FAERS Safety Report 6640102-2 (Version None)
Quarter: 2010Q1

REPORT INFORMATION
  Report Type: 
  Country: None (occurrence: None)
  Receive Date: 20100315
  Receipt Date: 20100303
  Transmission Date: 20100710
  Serious: Yes (Other)
  Sender: FDA-Public Use
  Company Number: SPV1-2010-00408

PATIENT
  Age: 63 Year
  Sex: Male

DRUGS (1)
  1. FOSRENOL [Suspect]
     Dosage: 1000 MG, 3X/DAY:TID
     Dates: start: 20090301

REACTIONS (1)
  - GAMMA-GLUTAMYLTRANSFERASE INCREASED [None]
